FAERS Safety Report 7769724-2 (Version None)
Quarter: 2011Q3

REPORT INFORMATION
  Report Type: 
  Country: None (occurrence: None)
  Receive Date: 20110922
  Receipt Date: 20110119
  Transmission Date: 20111222
  Serious: No
  Sender: FDA-Public Use
  Company Number: US-ASTRAZENECA-2011SE03418

PATIENT
  Age: 48 Year
  Sex: Female

DRUGS (1)
  1. SEROQUEL [Suspect]
     Dosage: 1/2 TABLET AM, 1/2 TABLET AT NOON AND 3 TABLETS HS
     Route: 048

REACTIONS (1)
  - SCHIZOPHRENIA, PARANOID TYPE [None]
